FAERS Safety Report 4436792-5 (Version None)
Quarter: 2004Q3

REPORT INFORMATION
  Report Type: 
  Country: None (occurrence: None)
  Receive Date: 20040827
  Receipt Date: 20040824
  Transmission Date: 20050211
  Serious: Yes (Other)
  Sender: FDA-Public Use
  Company Number: 002503

PATIENT
  Sex: Female

DRUGS (6)
  1. MEDROXYPROGESTERONE ACETATE [Suspect]
  2. MEDROXYPROGESTERONE ACETATE [Suspect]
  3. PREMARIN [Suspect]
  4. ORTHO-PREFEST [Suspect]
  5. PROVERA [Suspect]
  6. ESTROGENS ( ) [Suspect]

REACTIONS (3)
  - ARTHRITIS [None]
  - BREAST CANCER [None]
  - DEAFNESS [None]
